FAERS Safety Report 9745124 (Version 2)
Quarter: 2013Q4

REPORT INFORMATION
  Report Type: Report from Study
  Country: US (occurrence: US)
  Receive Date: 20131211
  Receipt Date: 20131211
  Transmission Date: 20140711
  Serious: Yes (Disabling)
  Sender: FDA-Public Use
  Company Number: US-ROCHE-1308820

PATIENT
  Sex: Female

DRUGS (12)
  1. LUCENTIS [Suspect]
     Indication: EYE HAEMORRHAGE
     Dosage: MOST RECENT DOSE -12/NOV, LEFT EYE
     Route: 065
     Dates: start: 201310
  2. LEVEMIR [Concomitant]
     Indication: DIABETES MELLITUS
     Route: 065
  3. HUMALOG [Concomitant]
     Indication: DIABETES MELLITUS
     Dosage: SLIDING SCALE
     Route: 065
  4. CRESTOR [Concomitant]
  5. LASIX [Concomitant]
     Indication: CARDIAC FAILURE CONGESTIVE
  6. LISINOPRIL [Concomitant]
  7. GABAPENTIN [Concomitant]
     Indication: NEUROPATHY PERIPHERAL
  8. CARVEDILOL [Concomitant]
     Route: 065
  9. ASPIRIN [Concomitant]
  10. AMLODIPINE [Concomitant]
  11. COMBIVENT [Concomitant]
  12. CYMBALTA [Concomitant]

REACTIONS (3)
  - Blindness [Unknown]
  - Vision blurred [Unknown]
  - Visual acuity reduced [Unknown]
